FAERS Safety Report 6758200-1 (Version None)
Quarter: 2010Q2

REPORT INFORMATION
  Report Type: 
  Country: None (occurrence: None)
  Receive Date: 20100603
  Receipt Date: 20100521
  Transmission Date: 20101027
  Serious: Yes (Hospitalization)
  Sender: FDA-Public Use
  Company Number: 2010S1000392-001

PATIENT
  Age: 61 Year
  Sex: Male

DRUGS (4)
  1. LIVALO [Suspect]
     Indication: HYPERCHOLESTEROLAEMIA
     Dosage: 1MG PO
     Route: 048
     Dates: start: 20100212, end: 20100426
  2. AMLODIPINE BESYLATE [Concomitant]
  3. VALSARTAN [Concomitant]
  4. GLYCYRRHIZIC ACID [Concomitant]

REACTIONS (7)
  - ASPARTATE AMINOTRANSFERASE INCREASED [None]
  - BLOOD ALKALINE PHOSPHATASE INCREASED [None]
  - BLOOD BILIRUBIN INCREASED [None]
  - BLOOD LACTATE DEHYDROGENASE INCREASED [None]
  - GAMMA-GLUTAMYLTRANSFERASE INCREASED [None]
  - MALAISE [None]
  - VOMITING [None]
